FAERS Safety Report 9842116 (Version 1)
Quarter: 2014Q1

REPORT INFORMATION
  Report Type: Spontaneous
  Country: US (occurrence: None)
  Receive Date: 20140123
  Receipt Date: 20140123
  Transmission Date: 20141002
  Serious: Yes (Life-Threatening, Hospitalization)
  Sender: FDA-Public Use
  Company Number: None

PATIENT
  Age: 42 Year
  Sex: Female
  Weight: 80.1 kg

DRUGS (5)
  1. RIFAXIMIN [Suspect]
     Indication: HEPATIC ENCEPHALOPATHY
     Route: 048
     Dates: start: 20131229, end: 20140105
  2. POTASSIUM CHLORIDE [Concomitant]
  3. ZINC [Concomitant]
  4. PREDNISOLONE [Concomitant]
  5. SPIRONOLACTONE [Concomitant]

REACTIONS (1)
  - Toxic epidermal necrolysis [None]
